FAERS Safety Report 24647120 (Version 5)
Quarter: 2025Q1

REPORT INFORMATION
  Report Type: Spontaneous
  Country: US (occurrence: US)
  Receive Date: 20241121
  Receipt Date: 20250225
  Transmission Date: 20250409
  Serious: Yes (Other)
  Sender: ROCHE
  Company Number: US-ROCHE-10000105728

PATIENT
  Sex: Female
  Weight: 61.2 kg

DRUGS (5)
  1. CAPECITABINE [Suspect]
     Active Substance: CAPECITABINE
     Indication: Breast cancer
     Dosage: 14 DAYS OFF, 7 DAYS OFF
     Route: 048
     Dates: end: 20241030
  2. HERCEPTIN [Suspect]
     Active Substance: TRASTUZUMAB
     Indication: Breast cancer
     Route: 065
  3. TUKYSA [Suspect]
     Active Substance: TUCATINIB
     Indication: Breast cancer
     Dosage: DATE OF LAST ADMINISTRATION ON 30-OCT-2024
     Route: 048
     Dates: start: 20240818, end: 20241030
  4. TUKYSA [Suspect]
     Active Substance: TUCATINIB
     Route: 048
     Dates: start: 20240819
  5. TUKYSA [Suspect]
     Active Substance: TUCATINIB
     Route: 048
     Dates: start: 20241109

REACTIONS (10)
  - Diarrhoea [Recovering/Resolving]
  - Dry skin [Recovering/Resolving]
  - Palmar-plantar erythrodysaesthesia syndrome [Recovering/Resolving]
  - Pulmonary thrombosis [Unknown]
  - Dysgeusia [Unknown]
  - Retching [Not Recovered/Not Resolved]
  - Nausea [Not Recovered/Not Resolved]
  - Blister [Recovering/Resolving]
  - Retching [Unknown]
  - Dysgeusia [Unknown]
